FAERS Safety Report 25025194 (Version 1)
Quarter: 2025Q1

REPORT INFORMATION
  Report Type: Spontaneous
  Country: BR (occurrence: BR)
  Receive Date: 20250228
  Receipt Date: 20250228
  Transmission Date: 20250408
  Serious: Yes (Other)
  Sender: AMGEN
  Company Number: BR-AMGEN-BRASP2025035131

PATIENT

DRUGS (6)
  1. INFLIXIMAB [Suspect]
     Active Substance: INFLIXIMAB
     Indication: Crohn^s disease
     Route: 065
  2. INFLIXIMAB [Suspect]
     Active Substance: INFLIXIMAB
     Indication: Colitis ulcerative
  3. INFLIXIMAB [Suspect]
     Active Substance: INFLIXIMAB
     Indication: Colitis
  4. ADALIMUMAB [Suspect]
     Active Substance: ADALIMUMAB
     Indication: Crohn^s disease
     Route: 065
  5. ADALIMUMAB [Suspect]
     Active Substance: ADALIMUMAB
     Indication: Colitis ulcerative
  6. ADALIMUMAB [Suspect]
     Active Substance: ADALIMUMAB
     Indication: Colitis

REACTIONS (26)
  - Cutaneous lupus erythematosus [Unknown]
  - Basal cell carcinoma [Unknown]
  - Seborrhoeic dermatitis [Unknown]
  - Dermatitis psoriasiform [Unknown]
  - Actinic keratosis [Unknown]
  - Erythema nodosum [Unknown]
  - Dermatitis contact [Unknown]
  - Eczema asteatotic [Unknown]
  - Stasis dermatitis [Unknown]
  - Dermatitis acneiform [Unknown]
  - Vitiligo [Unknown]
  - Paradoxical drug reaction [Unknown]
  - Injection site reaction [Unknown]
  - Acne [Unknown]
  - Skin papilloma [Unknown]
  - Erythema [Unknown]
  - Alopecia [Unknown]
  - Skin infection [Unknown]
  - Infusion site reaction [Unknown]
  - Rash [Unknown]
  - Fungal infection [Unknown]
  - Pruritus [Unknown]
  - Bacterial infection [Unknown]
  - Viral infection [Unknown]
  - Urticaria [Unknown]
  - Local reaction [Unknown]
